FAERS Safety Report 14834504 (Version 1)
Quarter: 2018Q2

REPORT INFORMATION
  Report Type: Spontaneous
  Country: US (occurrence: US)
  Receive Date: 20180501
  Receipt Date: 20180501
  Transmission Date: 20180711
  Serious: No
  Sender: FDA-Public Use
  Company Number: US-PERRIGO-17US024212

PATIENT
  Age: 76 Year
  Sex: Female
  Weight: 62.13 kg

DRUGS (2)
  1. TRIAMCINOLONE ACETONIDE. [Suspect]
     Active Substance: TRIAMCINOLONE ACETONIDE
     Indication: PRURITUS
     Dosage: 1 LARGE APPLICATION, NIGHTLY
     Route: 061
     Dates: start: 20170526
  2. TRIAMCINOLONE ACETONIDE. [Suspect]
     Active Substance: TRIAMCINOLONE ACETONIDE
     Indication: RASH
     Dosage: 1 SMALL APPLICATION, NIGHTLY
     Route: 061
     Dates: start: 201704, end: 201705

REACTIONS (4)
  - Periorbital oedema [Recovered/Resolved]
  - Eye haemorrhage [Recovered/Resolved]
  - Inappropriate schedule of drug administration [Unknown]
  - Application site pruritus [Not Recovered/Not Resolved]

NARRATIVE: CASE EVENT DATE: 2017
